FAERS Safety Report 4314824-2 (Version None)
Quarter: 2004Q1

REPORT INFORMATION
  Report Type: 
  Country: None (occurrence: None)
  Receive Date: 20040308
  Receipt Date: 20040223
  Transmission Date: 20041129
  Serious: Yes (Hospitalization, Other)
  Sender: FDA-Public Use
  Company Number: HQWYE794603FEB04

PATIENT
  Age: 40 Year
  Sex: Female

DRUGS (5)
  1. NEORAL [Suspect]
     Indication: PROPHYLAXIS AGAINST TRANSPLANT REJECTION
     Dosage: 125 MG 1X PER 12 HR ORAL
     Route: 048
     Dates: start: 20031127
  2. CELLCEPT [Concomitant]
  3. DELTISONA ^ROUSSEL^ (PREDNISONE) [Concomitant]
  4. OMEPRAZOLE [Concomitant]
  5. ENALAPRIL MALEATE [Concomitant]

REACTIONS (4)
  - BLOOD CREATININE INCREASED [None]
  - BLOOD UREA INCREASED [None]
  - CLEAR CELL CARCINOMA OF THE KIDNEY [None]
  - PYREXIA [None]
